FAERS Safety Report 15149984 (Version 4)
Quarter: 2022Q3

REPORT INFORMATION
  Report Type: Report from Study
  Country: CN (occurrence: None)
  Receive Date: 20180716
  Receipt Date: 20220920
  Transmission Date: 20221027
  Serious: Yes (Hospitalization)
  Sender: FDA-Public Use
  Company Number: CN-ROCHE-2152697

PATIENT
  Age: 81 Year
  Sex: Male
  Weight: 75 kg

DRUGS (34)
  1. ATEZOLIZUMAB [Suspect]
     Active Substance: ATEZOLIZUMAB
     Indication: Transitional cell carcinoma
     Dosage: MOST RECENT DOSE ON 26/JUN/2018.
     Route: 042
     Dates: start: 20180626
  2. GEMCITABINE [Suspect]
     Active Substance: GEMCITABINE
     Indication: Transitional cell carcinoma
     Dosage: DAY 1 AND DAY 8 OF EACH 21-DAY CYCLE.?MOST RECENT DOSE 1800 MG/M^2 ON 04/JUL/2018
     Route: 042
     Dates: start: 20180626
  3. CISPLATIN [Suspect]
     Active Substance: CISPLATIN
     Indication: Transitional cell carcinoma
     Dosage: RECEIVED MOST RECENT DOSE OF 126 MG ON 26/JUN/2018.
     Route: 042
     Dates: start: 20180626
  4. METFORMIN HYDROCHLORIDE [Concomitant]
     Active Substance: METFORMIN HYDROCHLORIDE
     Indication: Hypoglycaemia
     Dosage: EXTENDED-RELEASE TABLETS
     Dates: start: 20180601, end: 20180721
  5. NIFEDIPINE [Concomitant]
     Active Substance: NIFEDIPINE
     Indication: Hypotension
     Dosage: CONTROLLED RELEASED TABLETS
     Route: 048
     Dates: start: 20180601, end: 20180720
  6. NIFEDIPINE [Concomitant]
     Active Substance: NIFEDIPINE
     Route: 048
     Dates: start: 20180531, end: 20180720
  7. POTASSIUM CHLORIDE [Concomitant]
     Active Substance: POTASSIUM CHLORIDE
     Dosage: POTASSIUM SUPPLEMENT
     Route: 048
     Dates: start: 20180627, end: 20180702
  8. POTASSIUM CHLORIDE [Concomitant]
     Active Substance: POTASSIUM CHLORIDE
     Route: 042
     Dates: start: 20180630, end: 20180702
  9. POTASSIUM CHLORIDE [Concomitant]
     Active Substance: POTASSIUM CHLORIDE
     Dosage: POTASSIUM SUPPLEMENT
     Route: 048
     Dates: start: 20180627, end: 20180627
  10. BROMHEXINE HYDROCHLORIDE [Concomitant]
     Active Substance: BROMHEXINE HYDROCHLORIDE
     Indication: Productive cough
     Route: 045
     Dates: start: 20180710, end: 20180719
  11. OMEPRAZOLE SODIUM [Concomitant]
     Active Substance: OMEPRAZOLE SODIUM
     Dosage: INHIBITION OF GASTRIC ACID
     Route: 042
     Dates: start: 20180713, end: 20180715
  12. OMEPRAZOLE SODIUM [Concomitant]
     Active Substance: OMEPRAZOLE SODIUM
     Route: 042
     Dates: start: 20180716, end: 20180716
  13. PIPERACILLIN SODIUM\TAZOBACTAM SODIUM [Concomitant]
     Active Substance: PIPERACILLIN SODIUM\TAZOBACTAM SODIUM
     Dosage: ANTI INFECTION
     Route: 042
     Dates: start: 20180716, end: 20180716
  14. BUMETANIDE [Concomitant]
     Active Substance: BUMETANIDE
     Indication: Polyuria
     Route: 042
     Dates: start: 20180626, end: 20180626
  15. BUMETANIDE [Concomitant]
     Active Substance: BUMETANIDE
     Route: 042
     Dates: start: 20180702, end: 20180704
  16. BUMETANIDE [Concomitant]
     Active Substance: BUMETANIDE
     Route: 042
     Dates: start: 20180706, end: 20180708
  17. BUMETANIDE [Concomitant]
     Active Substance: BUMETANIDE
     Route: 042
     Dates: start: 20180707, end: 20180707
  18. METOCLOPRAMIDE DIHYDROCHLORIDE [Concomitant]
     Indication: Prophylaxis of nausea and vomiting
     Route: 042
     Dates: start: 20180626, end: 20180626
  19. METOCLOPRAMIDE DIHYDROCHLORIDE [Concomitant]
     Route: 042
     Dates: start: 20180704, end: 20180704
  20. TROPISETRON HYDROCHLORIDE [Concomitant]
     Active Substance: TROPISETRON HYDROCHLORIDE
     Indication: Prophylaxis of nausea and vomiting
     Route: 042
     Dates: start: 20180626, end: 20180626
  21. TROPISETRON HYDROCHLORIDE [Concomitant]
     Active Substance: TROPISETRON HYDROCHLORIDE
     Route: 042
     Dates: start: 20180702, end: 20180704
  22. DEXTROSE\SODIUM CHLORIDE [Concomitant]
     Active Substance: DEXTROSE\SODIUM CHLORIDE
     Dosage: 5% GLUCOSE AND SODIUM CHLORIDE AS FLUID INFUSION
     Route: 042
     Dates: start: 20180626, end: 20180626
  23. DEXTROSE\SODIUM CHLORIDE [Concomitant]
     Active Substance: DEXTROSE\SODIUM CHLORIDE
     Dosage: 5% GLUCOSE AND SODIUM CHLORIDE AS FLUID INFUSION
     Route: 042
     Dates: start: 20180704, end: 20180704
  24. FUROSEMIDE [Concomitant]
     Active Substance: FUROSEMIDE
     Indication: Polyuria
     Route: 042
     Dates: start: 20180629, end: 20180629
  25. FUROSEMIDE [Concomitant]
     Active Substance: FUROSEMIDE
     Route: 042
     Dates: start: 20180702, end: 20180702
  26. FUROSEMIDE [Concomitant]
     Active Substance: FUROSEMIDE
     Route: 042
     Dates: start: 20180716, end: 20180716
  27. ACETYLCYSTEINE [Concomitant]
     Active Substance: ACETYLCYSTEINE
     Indication: Productive cough
     Route: 045
     Dates: start: 20180630, end: 20180630
  28. ACETYLCYSTEINE [Concomitant]
     Active Substance: ACETYLCYSTEINE
     Route: 045
     Dates: start: 20180704, end: 20180704
  29. TORSEMIDE [Concomitant]
     Active Substance: TORSEMIDE
     Indication: Polyuria
     Route: 042
     Dates: start: 20180630, end: 20180630
  30. TROPISETRON [Concomitant]
     Active Substance: TROPISETRON
     Indication: Nausea
     Route: 042
     Dates: start: 20180702, end: 20180703
  31. DEXAMETHASONE SODIUM PHOSPHATE [Concomitant]
     Active Substance: DEXAMETHASONE SODIUM PHOSPHATE
     Dosage: ANTI ALLERGY
     Route: 042
     Dates: start: 20180716, end: 20180716
  32. METHYLPREDNISOLONE SODIUM SUCCINATE [Concomitant]
     Active Substance: METHYLPREDNISOLONE SODIUM SUCCINATE
     Dosage: ALLEVIATING AIRWAY SPASM
     Route: 042
     Dates: start: 20180716, end: 20180716
  33. OMEPRAZOLE SODIUM [Concomitant]
     Active Substance: OMEPRAZOLE SODIUM
     Dosage: PREVENTION OF STRESS ULCER
     Route: 042
     Dates: start: 20180716, end: 20180716
  34. INSULIN HUMAN [Concomitant]
     Active Substance: INSULIN HUMAN
     Indication: Diabetes mellitus
     Dates: start: 20180630, end: 20180702

REACTIONS (1)
  - Platelet count decreased [Recovered/Resolved]

NARRATIVE: CASE EVENT DATE: 20180630
